FAERS Safety Report 4504231-1 (Version None)
Quarter: 2004Q4

REPORT INFORMATION
  Report Type: 
  Country: None (occurrence: None)
  Receive Date: 20041118
  Receipt Date: 20040714
  Transmission Date: 20050328
  Serious: Yes (Hospitalization)
  Sender: FDA-Public Use
  Company Number: BR-ABBOTT-04P-020-0267377-00

PATIENT
  Age: 58 Year
  Sex: Male
  Weight: 19 kg

DRUGS (4)
  1. SYNTHROID [Suspect]
     Indication: HYPOTHYROIDISM
     Route: 065
  2. SYNTHROID [Suspect]
     Route: 048
  3. SYNTHROID [Suspect]
     Route: 048
  4. AMOXICILLIN [Concomitant]
     Indication: PHARYNGOLARYNGEAL PAIN
     Route: 048

REACTIONS (14)
  - ABDOMINAL PAIN [None]
  - BLOOD CHOLESTEROL INCREASED [None]
  - BLOOD THYROID STIMULATING HORMONE INCREASED [None]
  - DRUG INEFFECTIVE [None]
  - DYSKINESIA [None]
  - FATIGUE [None]
  - FLATULENCE [None]
  - INTESTINAL FUNCTIONAL DISORDER [None]
  - LIVEDO RETICULARIS [None]
  - NEPHROTIC SYNDROME [None]
  - OEDEMA PERIPHERAL [None]
  - PERIPHERAL COLDNESS [None]
  - SOMNOLENCE [None]
  - THYROXINE INCREASED [None]
